FAERS Safety Report 9154940 (Version 1)
Quarter: 2013Q1

REPORT INFORMATION
  Report Type: Spontaneous
  Country: US (occurrence: None)
  Receive Date: 20130305
  Receipt Date: 20130305
  Transmission Date: 20140127
  Serious: Yes (Hospitalization)
  Sender: FDA-Public Use
  Company Number: None

PATIENT
  Age: 66 Year
  Sex: Male
  Weight: 90 kg

DRUGS (1)
  1. AMITRIPTYLINE [Suspect]
     Indication: HYPONATRAEMIA
     Dosage: 2.5 TAB AT BEDTIME PO
     Route: 048
     Dates: start: 20110217, end: 20130111

REACTIONS (1)
  - Hyponatraemia [None]
